FAERS Safety Report 4760356-7 (Version None)
Quarter: 2005Q3

REPORT INFORMATION
  Report Type: 
  Country: None (occurrence: None)
  Receive Date: 20050902
  Receipt Date: 20050826
  Transmission Date: 20060218
  Serious: Yes (Other)
  Sender: FDA-Public Use
  Company Number: PHNU2005DE02980

PATIENT
  Age: 71 Year
  Sex: Female
  Weight: 94 kg

DRUGS (3)
  1. ISOPTIN RR PLUS [Concomitant]
     Indication: HYPERTROPHIC OBSTRUCTIVE CARDIOMYOPATHY
     Dosage: 1 DF, QD
     Dates: start: 19970101
  2. TROMCARDIN FORTE [Concomitant]
     Dosage: 1 DF, BID
     Dates: start: 19980101
  3. DIOVAN [Suspect]
     Indication: CARDIAC FAILURE
     Dosage: 0.5 DF, BID
     Dates: start: 20040901, end: 20050323

REACTIONS (15)
  - ANAEMIA [None]
  - BLOOD IRON DECREASED [None]
  - DYSGEUSIA [None]
  - DYSPHONIA [None]
  - HAEMATOCRIT DECREASED [None]
  - HAEMOGLOBIN DECREASED [None]
  - MEAN CELL HAEMOGLOBIN CONCENTRATION DECREASED [None]
  - MEAN CELL HAEMOGLOBIN DECREASED [None]
  - PLATELET COUNT INCREASED [None]
  - PRODUCTIVE COUGH [None]
  - RED BLOOD CELL COUNT DECREASED [None]
  - SALIVA ALTERED [None]
  - SERUM FERRITIN DECREASED [None]
  - VOCAL CORD PARALYSIS [None]
  - WHITE BLOOD CELL COUNT INCREASED [None]
